FAERS Safety Report 12445815 (Version 1)
Quarter: 2016Q2

REPORT INFORMATION
  Report Type: Spontaneous
  Country: US (occurrence: US)
  Receive Date: 20160608
  Receipt Date: 20160608
  Transmission Date: 20160815
  Serious: No
  Sender: FDA-Public Use
  Company Number: US-JNJFOC-20160513275

PATIENT
  Age: 1 Decade

DRUGS (1)
  1. CHILDRENS TYLENOL [Suspect]
     Active Substance: ACETAMINOPHEN
     Indication: MEDICATION ERROR
     Route: 048
     Dates: start: 20160512

REACTIONS (1)
  - Accidental exposure to product [Unknown]
